FAERS Safety Report 9312449 (Version 1)
Quarter: 2013Q2

REPORT INFORMATION
  Report Type: Spontaneous
  Country: GB (occurrence: GB)
  Receive Date: 20130528
  Receipt Date: 20130528
  Transmission Date: 20140414
  Serious: Yes (Disabling)
  Sender: FDA-Public Use
  Company Number: GB-BAUSCH-BL-2013-003273

PATIENT
  Age: 35 Year
  Sex: Female

DRUGS (24)
  1. PREDNISOLONE [Suspect]
     Indication: DIFFUSE LARGE B-CELL LYMPHOMA
     Route: 048
     Dates: start: 20120410
  2. CYCLOPHOSPHAMIDE [Suspect]
     Indication: DIFFUSE LARGE B-CELL LYMPHOMA
     Dates: start: 20120410
  3. DOXORUBICIN [Suspect]
     Indication: DIFFUSE LARGE B-CELL LYMPHOMA
     Dates: start: 20120410
  4. RITUXIMAB [Suspect]
     Indication: DIFFUSE LARGE B-CELL LYMPHOMA
     Dosage: 2.74 MG/ML
  5. RITUXIMAB [Suspect]
     Dosage: 4 MG/M
     Dates: start: 20120410
  6. VINCRISTINE [Suspect]
     Indication: DIFFUSE LARGE B-CELL LYMPHOMA
     Dates: start: 20120410
  7. VALACICLOVIR HYDROCHLORIDE [Concomitant]
     Indication: PROPHYLAXIS
     Dates: start: 20120307, end: 20120630
  8. PARACETAMOL [Concomitant]
     Indication: PREMEDICATION
     Dates: start: 20120410, end: 20120817
  9. PARACETAMOL [Concomitant]
     Indication: ABDOMINAL PAIN
  10. MACROGOL 3350 [Concomitant]
     Indication: CONSTIPATION
     Dates: start: 20120608
  11. BENZYDAMINE HYDROCHLORIDE [Concomitant]
     Indication: MUCOSAL INFLAMMATION
     Dates: start: 20120320, end: 20120817
  12. CODEINE [Concomitant]
     Indication: ORAL PAIN
     Dates: start: 20120427
  13. DOCUSATE SODIUM [Concomitant]
     Indication: CONSTIPATION
  14. DIPHENHYDRAMINE [Concomitant]
     Indication: PREMEDICATION
     Dates: start: 20120410
  15. LIDOCAINE [Concomitant]
     Indication: PRODUCT USED FOR UNKNOWN INDICATION
     Dates: start: 20120608
  16. MORPHINE SULFATE [Concomitant]
     Indication: ABDOMINAL DISCOMFORT
     Dates: start: 20120320, end: 20120817
  17. NAPROXEN [Concomitant]
     Indication: BACK PAIN
  18. PANTOPRAZOLE [Concomitant]
     Indication: DYSPEPSIA
  19. MACROGOL 3350 [Concomitant]
     Indication: CONSTIPATION
     Dates: start: 20120608
  20. PHENYLMERCURIC NITRATE/YEAST/SHARK-LIVER OIL [Concomitant]
     Indication: HAEMORRHOIDS
     Dates: start: 20120517
  21. RANITIDINE [Concomitant]
     Indication: PREMEDICATION
  22. SENNA ALEXANDRINA [Concomitant]
     Indication: CONSTIPATION
  23. TRAMADOL HYDROCHLORIDE [Concomitant]
     Indication: ABDOMINAL PAIN
     Dates: end: 20120817
  24. DROSPIRENONE/ETHINYLESTRADIOL BETADEX CLATHRATE [Concomitant]
     Indication: CONTRACEPTION

REACTIONS (2)
  - Stomatitis [Recovering/Resolving]
  - Condition aggravated [Recovering/Resolving]
